FAERS Safety Report 6236442-1 (Version None)
Quarter: 2009Q2

REPORT INFORMATION
  Report Type: 
  Country: None (occurrence: None)
  Receive Date: 20090619
  Receipt Date: 20090610
  Transmission Date: 20091009
  Serious: Yes (Hospitalization, Other)
  Sender: FDA-Public Use
  Company Number: AR-PFIZER INC-2009212499

PATIENT
  Age: 55 Year

DRUGS (1)
  1. SUTENT [Suspect]
     Indication: RENAL CANCER
     Dosage: 50 MG, 1X/DAY, 4/2 SCHEDULE
     Route: 048
     Dates: start: 20090101, end: 20090501

REACTIONS (4)
  - ASTHENIA [None]
  - CONVULSION [None]
  - MYOCLONUS [None]
  - PRESYNCOPE [None]
